FAERS Safety Report 18241733 (Version 1)
Quarter: 2020Q3

REPORT INFORMATION
  Report Type: Spontaneous
  Country: US (occurrence: US)
  Receive Date: 20200907
  Receipt Date: 20200907
  Transmission Date: 20201103
  Serious: No
  Sender: FDA-Public Use
  Company Number: None

PATIENT
  Age: 28 Year
  Sex: Male
  Weight: 72 kg

DRUGS (2)
  1. PRILOSEC [Concomitant]
     Active Substance: OMEPRAZOLE MAGNESIUM
  2. INVEGA SUSTENNA [Suspect]
     Active Substance: PALIPERIDONE PALMITATE
     Indication: POST-TRAUMATIC STRESS DISORDER
     Route: 030
     Dates: start: 20190801, end: 20200812

REACTIONS (6)
  - Blood cholesterol increased [None]
  - Chest pain [None]
  - Chapped lips [None]
  - Skin exfoliation [None]
  - Unevaluable event [None]
  - Weight increased [None]

NARRATIVE: CASE EVENT DATE: 20191001
